FAERS Safety Report 11318301 (Version 2)
Quarter: 2015Q3

REPORT INFORMATION
  Report Type: Spontaneous
  Country: US (occurrence: US)
  Receive Date: 20150728
  Receipt Date: 20150907
  Transmission Date: 20151125
  Serious: No
  Sender: FDA-Public Use
  Company Number: PHEH2015US014430

PATIENT
  Sex: Male

DRUGS (1)
  1. EXELON PATCH [Suspect]
     Active Substance: RIVASTIGMINE
     Indication: PRODUCT USED FOR UNKNOWN INDICATION
     Dosage: 09 MG DAILY RIVASTIGMINE BASE (PATCH 5 (CM2), 4.6 MG/24HOURS).
     Route: 062
     Dates: start: 20150722

REACTIONS (5)
  - Product adhesion issue [Unknown]
  - Underdose [Unknown]
  - Memory impairment [Unknown]
  - Wrong technique in product usage process [Unknown]
  - Confusional state [Unknown]
